FAERS Safety Report 9736509 (Version 2)
Quarter: 2013Q4

REPORT INFORMATION
  Report Type: Spontaneous
  Country: IT (occurrence: IT)
  Receive Date: 20131206
  Receipt Date: 20131227
  Transmission Date: 20140711
  Serious: Yes (Other)
  Sender: FDA-Public Use
  Company Number: IT-TEVA-446830ISR

PATIENT
  Age: 23 Year
  Sex: Female

DRUGS (6)
  1. DIAZEPAM [Suspect]
     Indication: SUICIDE ATTEMPT
     Dosage: 20 GTT TOTAL
     Route: 048
     Dates: start: 20131021, end: 20131021
  2. DIAZEPAM [Suspect]
     Route: 048
     Dates: start: 20130724, end: 20131021
  3. PAROXETINE [Suspect]
     Indication: SUICIDE ATTEMPT
     Dosage: 200 MG TOTAL
     Route: 048
     Dates: start: 20131021, end: 20131021
  4. PAROXETINE [Suspect]
     Route: 048
     Dates: start: 20130724, end: 20131021
  5. TOLEP - 600 MG COMPRESSE - NOVARTIS FARMA SPA [Suspect]
     Indication: SUICIDE ATTEMPT
     Dosage: 3600 MILLIGRAM DAILY; 6 DOSAGE FORM TOTAL
     Route: 048
     Dates: start: 20131021, end: 20131021
  6. TOLEP - 600 MG COMPRESSE - NOVARTIS FARMA SPA [Suspect]
     Dosage: 600 MILLIGRAM DAILY;
     Route: 048
     Dates: start: 20130727, end: 20131021

REACTIONS (3)
  - Suicidal ideation [Recovered/Resolved]
  - Sopor [Recovered/Resolved]
  - Drug abuse [Recovered/Resolved]
